FAERS Safety Report 8477405-5 (Version None)
Quarter: 2012Q2

REPORT INFORMATION
  Report Type: 
  Country: None (occurrence: None)
  Receive Date: 20120629
  Receipt Date: 20120621
  Transmission Date: 20120825
  Serious: Yes (Hospitalization, Other)
  Sender: FDA-Public Use
  Company Number: US-BAYER-2011-074943

PATIENT
  Age: 17 Year
  Sex: Female
  Weight: 45 kg

DRUGS (5)
  1. YAZ [Suspect]
     Dosage: UNK
     Dates: start: 20080101, end: 20090101
  2. RONDEC DM [CARBINOXAM MAL,DEXTROMET HBR,PSEUDOEPH HCL] [Concomitant]
     Indication: UPPER RESPIRATORY TRACT INFECTION
  3. DARVOCET-N 50 [Concomitant]
     Indication: ARTHRALGIA
     Dosage: UNK UNK, PRN
  4. ACETAMINOPHEN [Concomitant]
     Indication: UPPER RESPIRATORY TRACT INFECTION
     Dosage: UNK UNK, PRN
  5. OMEPRAZOLE [Concomitant]
     Indication: GASTROOESOPHAGEAL REFLUX DISEASE
     Dosage: 20 MG, QD

REACTIONS (4)
  - GALLBLADDER INJURY [None]
  - PAIN [None]
  - CHOLELITHIASIS [None]
  - INJURY [None]
